FAERS Safety Report 12764356 (Version 1)
Quarter: 2016Q3

REPORT INFORMATION
  Report Type: Spontaneous
  Country: CA (occurrence: CA)
  Receive Date: 20160920
  Receipt Date: 20160920
  Transmission Date: 20161109
  Serious: Yes (Hospitalization)
  Sender: FDA-Public Use
  Company Number: CA-ASTRAZENECA-2016SE98286

PATIENT
  Age: 82 Year
  Sex: Female
  Weight: 69.9 kg

DRUGS (22)
  1. NEXIUM [Concomitant]
     Active Substance: ESOMEPRAZOLE MAGNESIUM
     Dates: start: 20130130, end: 20140122
  2. LASIX [Concomitant]
     Active Substance: FUROSEMIDE
     Dates: start: 20140203
  3. ACETAMINOPHEN. [Concomitant]
     Active Substance: ACETAMINOPHEN
     Dates: start: 20140206
  4. TIMOLOL XE [Concomitant]
     Active Substance: TIMOLOL
     Dates: start: 20140408
  5. DIAMICRON MR [Concomitant]
     Active Substance: GLICLAZIDE
     Dates: start: 20140620
  6. CRESTOR [Concomitant]
     Active Substance: ROSUVASTATIN CALCIUM
     Dates: start: 20140206
  7. NITROGLYCERIN. [Concomitant]
     Active Substance: NITROGLYCERIN
     Dates: start: 20140123
  8. ASA [Concomitant]
     Active Substance: ASPIRIN
  9. COMBIGAN [Concomitant]
     Active Substance: BRIMONIDINE TARTRATE\TIMOLOL MALEATE
     Dates: start: 2007
  10. D-TABS [Concomitant]
     Active Substance: CHOLECALCIFEROL
     Dates: start: 2010
  11. LOPRESSOR [Concomitant]
     Active Substance: METOPROLOL TARTRATE
     Dates: start: 20140131
  12. ATIVAN [Concomitant]
     Active Substance: LORAZEPAM
     Dates: start: 20140127
  13. CELECOXIB. [Concomitant]
     Active Substance: CELECOXIB
     Indication: OSTEOARTHRITIS
     Route: 048
     Dates: start: 20131030, end: 20141022
  14. PRO CAL D [Concomitant]
     Dates: start: 2010
  15. K-DUR [Concomitant]
     Active Substance: POTASSIUM CHLORIDE
     Dates: start: 20140210
  16. BRILINTA [Suspect]
     Active Substance: TICAGRELOR
     Indication: MYOCARDIAL INFARCTION
     Route: 048
     Dates: start: 20140203, end: 20140724
  17. DETROL LA [Concomitant]
     Active Substance: TOLTERODINE TARTRATE
     Dates: start: 2009
  18. LUMIGAN [Concomitant]
     Active Substance: BIMATOPROST
     Dates: start: 2007
  19. GABAPENTIN. [Concomitant]
     Active Substance: GABAPENTIN
     Dates: start: 20140206
  20. PANTOLOC [Concomitant]
     Active Substance: PANTOPRAZOLE SODIUM
     Dates: start: 20140620
  21. VITAMIN B12 [Concomitant]
     Active Substance: CYANOCOBALAMIN
     Dates: start: 20140620
  22. METFORMIN [Concomitant]
     Active Substance: METFORMIN HYDROCHLORIDE
     Dates: start: 20140314

REACTIONS (4)
  - Haematochezia [Unknown]
  - Barrett^s oesophagus [Unknown]
  - Haemorrhoids [Unknown]
  - Anaemia [Recovered/Resolved]

NARRATIVE: CASE EVENT DATE: 20140725
